FAERS Safety Report 11133172 (Version 8)
Quarter: 2016Q1

REPORT INFORMATION
  Report Type: Report from Study
  Country: FR (occurrence: FR)
  Receive Date: 20150522
  Receipt Date: 20160311
  Transmission Date: 20160525
  Serious: Yes (Other)
  Sender: FDA-Public Use
  Company Number: FR-AEGERION PHARMACEUTICAL INC.-AEGR001398

PATIENT

DRUGS (8)
  1. MYALEPT [Suspect]
     Active Substance: METRELEPTIN
     Dosage: 2 ML, QD
     Route: 058
     Dates: start: 201412
  2. MYALEPT [Suspect]
     Active Substance: METRELEPTIN
     Indication: LIPODYSTROPHY ACQUIRED
     Dosage: 0.4 ML, QD
     Route: 058
     Dates: start: 20140109
  3. MYALEPT [Suspect]
     Active Substance: METRELEPTIN
     Dosage: 1.2 ML, QD
     Route: 058
     Dates: start: 20140514
  4. MYALEPT [Suspect]
     Active Substance: METRELEPTIN
     Dosage: 1.4 ML, QD
     Route: 058
     Dates: start: 20141010
  5. INSULIN [Concomitant]
     Active Substance: INSULIN NOS
     Indication: DIABETES MELLITUS
     Dosage: 80 UNITS, QD
     Dates: start: 201209
  6. ENALAPRIL [Concomitant]
     Active Substance: ENALAPRIL
     Indication: HYPERTENSION
     Dosage: 50 MG, QD
     Dates: start: 201401
  7. MYALEPT [Suspect]
     Active Substance: METRELEPTIN
     Dosage: 0.8 ML, QD
     Route: 058
     Dates: start: 20140212
  8. METFORMINE [Concomitant]
     Active Substance: METFORMIN HYDROCHLORIDE
     Indication: DIABETES MELLITUS
     Dosage: 700 MG, TID
     Dates: start: 201310

REACTIONS (9)
  - Hyperphagia [Unknown]
  - Drug ineffective [Unknown]
  - Hepatic steatosis [Unknown]
  - Hepatomegaly [Unknown]
  - Insulin resistance [Unknown]
  - Neutralising antibodies positive [Unknown]
  - Injection site inflammation [Recovered/Resolved]
  - Diabetes mellitus [Unknown]
  - Weight increased [Unknown]

NARRATIVE: CASE EVENT DATE: 20150604
